FAERS Safety Report 18066176 (Version 1)
Quarter: 2020Q3

REPORT INFORMATION
  Report Type: Spontaneous
  Country: CH (occurrence: CH)
  Receive Date: 20200724
  Receipt Date: 20200724
  Transmission Date: 20201103
  Serious: Yes (Other)
  Sender: FDA-Public Use
  Company Number: CH-SA-2020SA184528

PATIENT

DRUGS (17)
  1. NIZORAL [Concomitant]
     Active Substance: KETOCONAZOLE
     Dates: start: 20200613, end: 20200619
  2. ZOLPIDEM [Concomitant]
     Active Substance: ZOLPIDEM TARTRATE
     Dosage: UNK
     Dates: end: 20200609
  3. BETAHISTINE [Concomitant]
     Active Substance: BETAHISTINE
     Dates: end: 20200609
  4. PARACETAMOL [Suspect]
     Active Substance: ACETAMINOPHEN
     Dosage: MAX 3X/D ; AS NECESSARY
     Route: 048
     Dates: start: 20200610, end: 20200619
  5. ASPIRIN CARDIO [Concomitant]
     Active Substance: ASPIRIN
     Dates: start: 20200615, end: 20200619
  6. EUTHYROX [Concomitant]
     Active Substance: LEVOTHYROXINE SODIUM
     Dates: start: 20200613, end: 20200619
  7. SILVER NITRATE. [Concomitant]
     Active Substance: SILVER NITRATE
     Dates: start: 20200613, end: 20200619
  8. PURSANA [Concomitant]
     Active Substance: FIG FRUIT OIL\SORBITOL
     Dosage: UNK, PRN
     Dates: start: 20200610, end: 20200619
  9. LUVIT D3 [Concomitant]
     Active Substance: CHOLECALCIFEROL
     Dates: start: 20200612, end: 20200619
  10. ZOLPIDEM [Concomitant]
     Active Substance: ZOLPIDEM TARTRATE
     Dosage: UNK, PRN
     Dates: start: 20200610, end: 20200619
  11. AMLODIPINE [Suspect]
     Active Substance: AMLODIPINE BESYLATE
     Indication: HYPERTENSION
     Dosage: 5 MG, QD
     Route: 048
     Dates: start: 20200617, end: 20200619
  12. CLEXANE [Suspect]
     Active Substance: ENOXAPARIN SODIUM
     Indication: THROMBOSIS PROPHYLAXIS
     Dosage: 40 MG, QD
     Route: 058
     Dates: start: 20200610, end: 20200619
  13. SULFAMETHOXAZOLE/TRIMETHOPRIM [Suspect]
     Active Substance: SULFAMETHOXAZOLE\TRIMETHOPRIM
     Indication: PYELONEPHRITIS ACUTE
     Dosage: 160 MG, BID
     Route: 048
     Dates: start: 20200612, end: 20200619
  14. ACIDUM FOLICUM [Concomitant]
     Active Substance: FOLIC ACID
     Dosage: UNK
     Dates: start: 20200611
  15. MYCOSTATINE [Concomitant]
     Active Substance: NYSTATIN
     Dates: start: 20200611, end: 20200611
  16. CEFTRIAXONE. [Suspect]
     Active Substance: CEFTRIAXONE
     Indication: PYELONEPHRITIS ACUTE
     Dosage: 2 G, QD
     Route: 042
     Dates: start: 20200610, end: 20200612
  17. VITAMIN B12 [COBAMAMIDE] [Concomitant]
     Dates: start: 20200611, end: 20200619

REACTIONS (1)
  - Rash maculo-papular [Not Recovered/Not Resolved]

NARRATIVE: CASE EVENT DATE: 20200619
